FAERS Safety Report 14452363 (Version 1)
Quarter: 2018Q1

REPORT INFORMATION
  Report Type: Spontaneous
  Country: IT (occurrence: IT)
  Receive Date: 20180129
  Receipt Date: 20180129
  Transmission Date: 20180509
  Serious: Yes (Other)
  Sender: FDA-Public Use
  Company Number: IT-JNJFOC-20180132001

PATIENT
  Age: 57 Year
  Sex: Female

DRUGS (1)
  1. TREVICTA [Suspect]
     Active Substance: PALIPERIDONE PALMITATE
     Indication: PRODUCT USED FOR UNKNOWN INDICATION
     Route: 030
     Dates: end: 201712

REACTIONS (12)
  - Amenorrhoea [Unknown]
  - Blood cholesterol increased [Unknown]
  - Akathisia [Unknown]
  - Blood triglycerides increased [Unknown]
  - Weight increased [Unknown]
  - Decreased appetite [Unknown]
  - Insomnia [Unknown]
  - Visual impairment [Unknown]
  - Laboratory test abnormal [Unknown]
  - Diplopia [Unknown]
  - Cardiac valve disease [Unknown]
  - Alopecia [Unknown]
